FAERS Safety Report 9640002 (Version 1)
Quarter: 2013Q4

REPORT INFORMATION
  Report Type: Spontaneous
  Country: US (occurrence: None)
  Receive Date: 20131021
  Receipt Date: 20131021
  Transmission Date: 20140711
  Serious: Yes (Other)
  Sender: FDA-Public Use
  Company Number: None

PATIENT
  Age: 85 Year
  Sex: Male
  Weight: 92.99 kg

DRUGS (1)
  1. CLINDAMYCIN [Suspect]
     Indication: STREPTOCOCCAL URINARY TRACT INFECTION
     Dosage: 2 CAPASULES EVERY 8 HOURS FOR 5 DAYS BY MOUTH
     Route: 048
     Dates: start: 20130924, end: 20130925

REACTIONS (1)
  - Diarrhoea haemorrhagic [None]
